FAERS Safety Report 7084520-X (Version None)
Quarter: 2010Q4

REPORT INFORMATION
  Report Type: 
  Country: None (occurrence: None)
  Receive Date: 20101104
  Receipt Date: 20101029
  Transmission Date: 20110411
  Serious: Yes (Death, Hospitalization)
  Sender: FDA-Public Use
  Company Number: GB-ELI_LILLY_AND_COMPANY-GB201010007051

PATIENT
  Age: 70 Year
  Sex: Female

DRUGS (2)
  1. ALIMTA [Suspect]
     Indication: ADENOCARCINOMA
     Dosage: UNK, UNKNOWN
     Route: 065
  2. CARBOPLATIN [Concomitant]
     Dosage: UNK, UNKNOWN
     Route: 065

REACTIONS (2)
  - MALIGNANT NEOPLASM PROGRESSION [None]
  - SUPERIOR VENA CAVAL OCCLUSION [None]
